FAERS Safety Report 4354441-1 (Version None)
Quarter: 2004Q2

REPORT INFORMATION
  Report Type: 
  Country: None (occurrence: None)
  Receive Date: 20040503
  Receipt Date: 20040329
  Transmission Date: 20050107
  Serious: Yes (Hospitalization)
  Sender: FDA-Public Use
  Company Number: PHEH2004US02660

PATIENT
  Age: 72 Year
  Sex: Male

DRUGS (1)
  1. LOTREL [Suspect]
     Indication: HYPERTENSION
     Dosage: 10 MG AMLOD/20 MG BENAZ QD
     Dates: start: 20040223, end: 20040223

REACTIONS (2)
  - ANGIONEUROTIC OEDEMA [None]
  - SWELLING FACE [None]
